FAERS Safety Report 7574842-8 (Version None)
Quarter: 2011Q2

REPORT INFORMATION
  Report Type: 
  Country: None (occurrence: None)
  Receive Date: 20110627
  Receipt Date: 20110609
  Transmission Date: 20111010
  Serious: Yes (Hospitalization)
  Sender: FDA-Public Use
  Company Number: FR-BAYER-2011-049590

PATIENT
  Sex: Female

DRUGS (4)
  1. AVELOX [Suspect]
     Dosage: UNK
     Dates: start: 20100101
  2. CELESTONE [Concomitant]
     Indication: RESPIRATORY TRACT INFECTION
     Dosage: UNK
     Route: 048
     Dates: start: 20110429
  3. PHOLCO-MEREPRINE [Concomitant]
     Indication: RESPIRATORY TRACT INFECTION
     Dosage: UNK
     Route: 048
     Dates: start: 20110429
  4. AVELOX [Suspect]
     Indication: RESPIRATORY TRACT INFECTION
     Dosage: DAILY DOSE 400 MG
     Route: 048
     Dates: start: 20110429, end: 20110502

REACTIONS (5)
  - HEADACHE [None]
  - NEURALGIA [None]
  - ARTHRALGIA [None]
  - ASTHENIA [None]
  - MYALGIA [None]
